FAERS Safety Report 8960281 (Version 3)
Quarter: 2013Q1

REPORT INFORMATION
  Report Type: Report from Study
  Country: HU (occurrence: HU)
  Receive Date: 20121211
  Receipt Date: 20130118
  Transmission Date: 20140127
  Serious: Yes (Hospitalization)
  Sender: FDA-Public Use
  Company Number: HU-VERTEX PHARMACEUTICALS INC.-2012-025998

PATIENT
  Age: 56 Year
  Sex: Male
  Weight: 96 kg

DRUGS (3)
  1. VX-950 (TELAPREVIR) [Suspect]
     Indication: HEPATITIS C
     Dosage: 750 MG, TID
     Route: 048
     Dates: start: 20120611, end: 20120903
  2. RIBAVIRIN [Suspect]
     Indication: HEPATITIS
     Dosage: DOSAGE FORM: UNKNOWN
     Route: 048
     Dates: start: 20120611, end: 20121023
  3. PEG-INTERFERON [Suspect]
     Indication: HEPATITIS
     Dosage: DOSAGE FORM: UNKNOWN
     Route: 065
     Dates: start: 20120611, end: 20121023

REACTIONS (2)
  - Lung abscess [Recovered/Resolved]
  - Abdominal abscess [Recovered/Resolved]
